FAERS Safety Report 7096939-1 (Version None)
Quarter: 2010Q4

REPORT INFORMATION
  Report Type: 
  Country: None (occurrence: None)
  Receive Date: 20101111
  Receipt Date: 20100305
  Transmission Date: 20110411
  Serious: No
  Sender: FDA-Public Use
  Company Number: US-KINGPHARMUSA00001-K201000281

PATIENT
  Age: 76 Year
  Sex: Male
  Weight: 78.912 kg

DRUGS (8)
  1. FLECTOR [Suspect]
     Indication: BACK PAIN
     Dosage: 1 PATCH, EVERY 12 HOURS
     Route: 061
     Dates: start: 20100302
  2. PERCOCET [Concomitant]
     Indication: BACK PAIN
     Dosage: UNK
  3. ANTIBIOTICS [Concomitant]
     Indication: CYSTITIS
     Dosage: UNK
  4. VESICARE [Concomitant]
     Indication: URINARY INCONTINENCE
     Dosage: UNK
     Dates: start: 20100304
  5. SIMVASTATIN [Concomitant]
     Indication: BLOOD CHOLESTEROL INCREASED
     Dosage: UNK
  6. ASPIRIN [Concomitant]
     Indication: CARDIAC PACEMAKER INSERTION
     Dosage: 81 MG, QD
     Route: 048
  7. PREDNISONE [Concomitant]
     Dosage: UNK
  8. ATENOLOL [Concomitant]
     Indication: CARDIAC PACEMAKER INSERTION
     Dosage: UNK

REACTIONS (2)
  - DECREASED APPETITE [None]
  - NAUSEA [None]
